FAERS Safety Report 18288145 (Version 1)
Quarter: 2020Q3

REPORT INFORMATION
  Report Type: Spontaneous
  Country: US (occurrence: US)
  Receive Date: 20200921
  Receipt Date: 20200921
  Transmission Date: 20201103
  Serious: No
  Sender: FDA-Public Use
  Company Number: US-JUBILANT PHARMA LTD-2020US000686

PATIENT
  Sex: Female

DRUGS (1)
  1. DRAXIMAGE MDP?25 [Suspect]
     Active Substance: TECHNETIUM TC-99M MEDRONATE
     Indication: RADIOISOTOPE SCAN
     Dosage: 25 MCI, SINGLE DOSE
     Route: 042
     Dates: start: 20200826, end: 20200826

REACTIONS (1)
  - Rash [Unknown]

NARRATIVE: CASE EVENT DATE: 20200826
